FAERS Safety Report 8567049-9 (Version None)
Quarter: 2012Q3

REPORT INFORMATION
  Report Type: 
  Country: None (occurrence: None)
  Receive Date: 20120803
  Receipt Date: 20111206
  Transmission Date: 20120928
  Serious: No
  Sender: FDA-Public Use
  Company Number: US-ABBOTT-11P-163-0881198-00

PATIENT
  Sex: Female
  Weight: 73.548 kg

DRUGS (16)
  1. NIASPAN [Suspect]
     Indication: HIGH DENSITY LIPOPROTEIN DECREASED
  2. LEVOTHYROXINE SODIUM [Concomitant]
     Indication: THYROID DISORDER
  3. ASPIRIN [Concomitant]
     Indication: PRODUCT USED FOR UNKNOWN INDICATION
  4. LISINOPRIL [Concomitant]
     Indication: HYPERTENSION
  5. GABAPENTIN [Concomitant]
     Indication: ASTHENIA
  6. ALENDRONATE SODIUM [Concomitant]
     Indication: PRODUCT USED FOR UNKNOWN INDICATION
  7. NIASPAN [Suspect]
     Indication: BLOOD CHOLESTEROL INCREASED
     Dates: start: 20111129
  8. TOPIRAMATE [Concomitant]
     Indication: HEADACHE
  9. ZOLPIDEM [Concomitant]
     Indication: INSOMNIA
  10. TORADOL [Concomitant]
     Indication: MUSCULOSKELETAL PAIN
  11. METOPROLOL TARTRATE [Concomitant]
     Indication: HYPERTENSION
  12. GABAPENTIN [Concomitant]
     Indication: PAIN IN EXTREMITY
  13. CRESTOR [Concomitant]
     Indication: PRODUCT USED FOR UNKNOWN INDICATION
  14. OMEPRAZOLE [Concomitant]
     Indication: ABDOMINAL PAIN UPPER
  15. NAPROXEN [Concomitant]
     Indication: HEADACHE
  16. EFFEXOR [Concomitant]
     Indication: PRODUCT USED FOR UNKNOWN INDICATION

REACTIONS (1)
  - FLUSHING [None]
